FAERS Safety Report 20386983 (Version 1)
Quarter: 2022Q1

REPORT INFORMATION
  Report Type: Spontaneous
  Country: US (occurrence: US)
  Receive Date: 20220127
  Receipt Date: 20220127
  Transmission Date: 20220424
  Serious: No
  Sender: FDA-Public Use
  Company Number: US-Teikoku Pharma USA-TPU2022-00088

PATIENT
  Sex: Male

DRUGS (1)
  1. LIDOCAINE PATCH [Suspect]
     Active Substance: LIDOCAINE
     Indication: Sciatica
     Route: 061
     Dates: start: 202201

REACTIONS (3)
  - Drug ineffective for unapproved indication [Unknown]
  - Pain [Unknown]
  - Product storage error [Unknown]
